FAERS Safety Report 16398246 (Version 4)
Quarter: 2019Q2

REPORT INFORMATION
  Report Type: Spontaneous
  Country: US (occurrence: US)
  Receive Date: 20190606
  Receipt Date: 20190629
  Transmission Date: 20190711
  Serious: No
  Sender: FDA-Public Use
  Company Number: US-JNJFOC-20190530489

PATIENT
  Sex: Female

DRUGS (1)
  1. MINOXIDIL. [Suspect]
     Active Substance: MINOXIDIL
     Indication: PRODUCT USED FOR UNKNOWN INDICATION
     Route: 061

REACTIONS (8)
  - Erythema [Unknown]
  - Suspected product contamination [Unknown]
  - Product use issue [Unknown]
  - Skin burning sensation [Unknown]
  - Product odour abnormal [Unknown]
  - Product packaging issue [Unknown]
  - Intentional product misuse [Unknown]
  - Product formulation issue [Unknown]
